FAERS Safety Report 4896125-7 (Version None)
Quarter: 2005Q4

REPORT INFORMATION
  Report Type: 
  Country: None (occurrence: None)
  Receive Date: 20051220
  Receipt Date: 20050801
  Transmission Date: 20060501
  Serious: Yes (Hospitalization)
  Sender: FDA-Public Use
  Company Number: US144836

PATIENT
  Age: 79 Year
  Sex: Female

DRUGS (11)
  1. ENBREL [Suspect]
     Indication: RHEUMATOID ARTHRITIS
     Dates: start: 20050101
  2. ACTONEL [Concomitant]
  3. METHOTREXATE [Concomitant]
  4. RAMIPRIL [Concomitant]
  5. TRIAMTERENE AND HYDROCHLOROTHIAZIDE [Concomitant]
  6. SIMVASTATIN [Concomitant]
  7. FLUOXETINE HYDROCHLORIDE [Concomitant]
  8. PREDNISONE [Concomitant]
  9. ALPRAZOLAM [Concomitant]
  10. CALCIUM GLUCONATE [Concomitant]
  11. ACETYLSALICYLIC ACID SRT [Concomitant]

REACTIONS (2)
  - CHEST PAIN [None]
  - PULMONARY EMBOLISM [None]
